FAERS Safety Report 16902125 (Version 1)
Quarter: 2019Q4

REPORT INFORMATION
  Report Type: Spontaneous
  Country: US (occurrence: US)
  Receive Date: 20191010
  Receipt Date: 20191010
  Transmission Date: 20200122
  Serious: No
  Sender: FDA-Public Use
  Company Number: US-ASTRAZENECA-2019SF29406

PATIENT
  Sex: Female

DRUGS (2)
  1. NEXIUM [Suspect]
     Active Substance: ESOMEPRAZOLE MAGNESIUM
     Route: 048
  2. AUSTEDO [Concomitant]
     Active Substance: DEUTETRABENAZINE
     Route: 048
     Dates: start: 201907

REACTIONS (6)
  - Mood altered [Unknown]
  - Epistaxis [Unknown]
  - Dry eye [Unknown]
  - Hair texture abnormal [Unknown]
  - Nasal inflammation [Unknown]
  - Dyspepsia [Unknown]
